FAERS Safety Report 9261486 (Version 1)
Quarter: 2013Q2

REPORT INFORMATION
  Report Type: Spontaneous
  Country: IT (occurrence: IT)
  Receive Date: 20130429
  Receipt Date: 20130429
  Transmission Date: 20140414
  Serious: Yes (Death)
  Sender: FDA-Public Use
  Company Number: IT-TEVA-399536ISR

PATIENT
  Age: 79 Year
  Sex: Male

DRUGS (9)
  1. DELTACORTENE [Concomitant]
     Dosage: 2 DOSAGE FORMS DAILY;
     Route: 048
  2. NOVONORM [Concomitant]
  3. ZOFRAN [Concomitant]
  4. TRIMETON [Concomitant]
  5. VINCRISTINA TEVA ITALIA [Suspect]
     Indication: CHRONIC LYMPHOCYTIC LEUKAEMIA
     Dosage: 2 MG CYCLICAL
     Route: 042
     Dates: start: 20121013, end: 20121109
  6. MABTHERA [Suspect]
     Indication: CHRONIC LYMPHOCYTIC LEUKAEMIA
     Dosage: 600 MG CYCLICAL
     Route: 041
     Dates: start: 20121013, end: 20121130
  7. ENDOXAN BAXTER [Suspect]
     Indication: CHRONIC LYMPHOCYTIC LEUKAEMIA
     Dosage: 1300 MG CYCLICAL
     Route: 041
     Dates: start: 20121013, end: 20121130
  8. OMEPRAZOLO [Concomitant]
     Dosage: 20 MILLIGRAM DAILY;
     Route: 048
  9. ENAPREN [Concomitant]

REACTIONS (4)
  - Acute respiratory failure [Fatal]
  - Septic shock [Fatal]
  - Pneumonia [Fatal]
  - Febrile neutropenia [Fatal]
